FAERS Safety Report 11844433 (Version 1)
Quarter: 2015Q4

REPORT INFORMATION
  Report Type: Report from Study
  Country: US (occurrence: US)
  Receive Date: 20151217
  Receipt Date: 20151217
  Transmission Date: 20160305
  Serious: No
  Sender: FDA-Public Use
  Company Number: PHEH2015US026199

PATIENT
  Sex: Female

DRUGS (2)
  1. TOBI [Suspect]
     Active Substance: TOBRAMYCIN
     Indication: OBSTRUCTIVE AIRWAYS DISORDER
  2. TOBI [Suspect]
     Active Substance: TOBRAMYCIN
     Indication: BRONCHIECTASIS
     Dosage: 1 DF (300 MG/ 5 ML)  BID
     Route: 055
     Dates: end: 20150801

REACTIONS (6)
  - Feeling abnormal [Unknown]
  - Malaise [Unknown]
  - Pyrexia [Unknown]
  - Product use issue [Unknown]
  - Chills [Unknown]
  - Mucosal discolouration [Unknown]
